FAERS Safety Report 25067395 (Version 1)
Quarter: 2025Q1

REPORT INFORMATION
  Report Type: Spontaneous
  Country: GB (occurrence: GB)
  Receive Date: 20250312
  Receipt Date: 20250312
  Transmission Date: 20250409
  Serious: Yes (Other)
  Sender: AUROBINDO
  Company Number: GB-MHRA-TPP16570655C10739351YC1740416533258

PATIENT
  Age: 81 Year
  Sex: Male
  Weight: 86 kg

DRUGS (21)
  1. CLARITHROMYCIN [Suspect]
     Active Substance: CLARITHROMYCIN
     Indication: Ill-defined disorder
     Dosage: 500 MILLIGRAM, TWO TIMES A DAY
     Route: 065
     Dates: start: 20250220
  2. K-LITE [Concomitant]
     Indication: Ill-defined disorder
     Dates: start: 20250224
  3. URGOCLEAN AG [Concomitant]
     Indication: Ill-defined disorder
     Route: 065
     Dates: start: 20250120, end: 20250121
  4. FLUCLOXACILLIN [Concomitant]
     Active Substance: FLUCLOXACILLIN
     Indication: Ill-defined disorder
     Dosage: 1 DOSAGE FORM, FOUR TIMES/DAY
     Route: 065
     Dates: start: 20241205, end: 20241212
  5. DERMOL [Concomitant]
     Active Substance: BENZALKONIUM CHLORIDE\CHLORHEXIDINE HYDROCHLORIDE\ISOPROPYL MYRISTATE\PARAFFIN
     Indication: Ill-defined disorder
     Route: 065
     Dates: start: 20241214, end: 20241215
  6. Kliniderm alginate [Concomitant]
     Indication: Ill-defined disorder
     Route: 065
     Dates: start: 20250120, end: 20250121
  7. CARBOXYMETHYLCELLULOSE SODIUM\SILVER [Concomitant]
     Active Substance: CARBOXYMETHYLCELLULOSE SODIUM\SILVER
     Indication: Ill-defined disorder
     Route: 065
     Dates: start: 20250224
  8. URSODIOL [Concomitant]
     Active Substance: URSODIOL
     Indication: Ill-defined disorder
     Dosage: 1 DOSAGE FORM, TWO TIMES A DAY
     Route: 065
     Dates: start: 20241018
  9. Mst [Concomitant]
     Indication: Ill-defined disorder
     Route: 065
     Dates: start: 20241018
  10. ALLOPURINOL [Concomitant]
     Active Substance: ALLOPURINOL
     Indication: Ill-defined disorder
     Route: 065
     Dates: start: 20241018
  11. AMITRIPTYLINE HYDROCHLORIDE [Concomitant]
     Active Substance: AMITRIPTYLINE HYDROCHLORIDE
     Indication: Ill-defined disorder
     Dosage: 2 DOSAGE FORM, ONCE A DAY(EACH NIGHT)
     Route: 065
     Dates: start: 20241018
  12. APIXABAN [Concomitant]
     Active Substance: APIXABAN
     Indication: Ill-defined disorder
     Dosage: 1 DOSAGE FORM, TWO TIMES A DAY
     Route: 065
     Dates: start: 20241018
  13. POLYETHYLENE GLYCOL 3350\POTASSIUM CHLORIDE\SODIUM BICARBONATE\SODIUM [Concomitant]
     Active Substance: POLYETHYLENE GLYCOL 3350\POTASSIUM CHLORIDE\SODIUM BICARBONATE\SODIUM CHLORIDE
     Indication: Ill-defined disorder
     Dosage: 1 DOSAGE FORM, 3 TIMES A DAY(WHEN REQUIRED)
     Route: 065
     Dates: start: 20241018
  14. DOXAZOSIN [Concomitant]
     Active Substance: DOXAZOSIN MESYLATE
     Indication: Ill-defined disorder
     Route: 065
     Dates: start: 20241018
  15. EMPAGLIFLOZIN [Concomitant]
     Active Substance: EMPAGLIFLOZIN
     Indication: Ill-defined disorder
     Route: 065
     Dates: start: 20241018
  16. FERROUS FUMARATE [Concomitant]
     Active Substance: FERROUS FUMARATE
     Indication: Ill-defined disorder
     Route: 065
     Dates: start: 20241018
  17. FUROSEMIDE [Concomitant]
     Active Substance: FUROSEMIDE
     Indication: Ill-defined disorder
     Route: 065
     Dates: start: 20241018
  18. OMEPRAZOLE [Concomitant]
     Active Substance: OMEPRAZOLE
     Indication: Ill-defined disorder
     Route: 065
     Dates: start: 20241018
  19. ACETAMINOPHEN [Concomitant]
     Active Substance: ACETAMINOPHEN
     Indication: Ill-defined disorder
     Route: 065
     Dates: start: 20241018
  20. SOLIFENACIN [Concomitant]
     Active Substance: SOLIFENACIN
     Indication: Ill-defined disorder
     Route: 065
     Dates: start: 20241018
  21. VALSARTAN [Concomitant]
     Active Substance: VALSARTAN
     Indication: Ill-defined disorder
     Route: 065
     Dates: start: 20241018

REACTIONS (1)
  - Urinary retention [Recovered/Resolved]
